FAERS Safety Report 16458281 (Version 1)
Quarter: 2019Q2

REPORT INFORMATION
  Report Type: Spontaneous
  Country: US (occurrence: US)
  Receive Date: 20190620
  Receipt Date: 20190620
  Transmission Date: 20190711
  Serious: Yes (Death)
  Sender: FDA-Public Use
  Company Number: US-ELI_LILLY_AND_COMPANY-US201906009126

PATIENT
  Age: 62 Year
  Sex: Female
  Weight: 61.22 kg

DRUGS (1)
  1. VERZENIO [Suspect]
     Active Substance: ABEMACICLIB
     Indication: NEOPLASM MALIGNANT
     Dosage: 100 MG, BID
     Route: 048
     Dates: start: 20181025

REACTIONS (1)
  - Death [Fatal]
